FAERS Safety Report 21975038 (Version 1)
Quarter: 2023Q1

REPORT INFORMATION
  Report Type: Spontaneous
  Country: US (occurrence: US)
  Receive Date: 20230209
  Receipt Date: 20230209
  Transmission Date: 20230418
  Serious: Yes (Hospitalization)
  Sender: FDA-Public Use
  Company Number: US-ACTELION-A-US2019-199160

PATIENT
  Age: 30 Year
  Sex: Female
  Weight: 94.331 kg

DRUGS (2)
  1. UPTRAVI [Suspect]
     Active Substance: SELEXIPAG
     Indication: Pulmonary arterial hypertension
     Dosage: 1600 MCG, BID
     Route: 048
  2. TADALAFIL [Concomitant]
     Active Substance: TADALAFIL

REACTIONS (6)
  - Exposure during pregnancy [Unknown]
  - Rhinovirus infection [Unknown]
  - Pyrexia [Unknown]
  - Malaise [Unknown]
  - Pneumonia [Unknown]
  - Emergency care [Unknown]
